FAERS Safety Report 4653492-7 (Version None)
Quarter: 2005Q2

REPORT INFORMATION
  Report Type: 
  Country: None (occurrence: None)
  Receive Date: 20050503
  Receipt Date: 20050418
  Transmission Date: 20051028
  Serious: Yes (Life-Threatening, Other)
  Sender: FDA-Public Use
  Company Number: GB-2005-005784

PATIENT
  Age: 58 Year
  Sex: Female
  Weight: 76 kg

DRUGS (7)
  1. MIRENA [Suspect]
     Indication: ENDOMETRIAL HYPERTROPHY
     Dosage: 20 UG/DAY, CONT, INTRA-UTERINE
     Route: 015
     Dates: start: 20020123, end: 20050310
  2. BENDROFLUAZIDE (BENDROFLUMETHIAZIDE) [Concomitant]
  3. ATENOLOL [Concomitant]
  4. CANDESARTAN (CANDESARTAN) [Concomitant]
  5. NUVELLE [Concomitant]
  6. ELLESTE-SOLO [Concomitant]
  7. TIBOLONE (TIBOLONE) [Concomitant]

REACTIONS (4)
  - ENDOMETRIAL CANCER [None]
  - POST PROCEDURAL COMPLICATION [None]
  - PULMONARY EMBOLISM [None]
  - VAGINAL HAEMORRHAGE [None]
